FAERS Safety Report 6699842-1 (Version None)
Quarter: 2010Q2

REPORT INFORMATION
  Report Type: 
  Country: None (occurrence: None)
  Receive Date: 20100427
  Receipt Date: 20100427
  Transmission Date: 20101027
  Serious: Yes (Death)
  Sender: FDA-Public Use
  Company Number: None

PATIENT
  Sex: Male
  Weight: 95.2554 kg

DRUGS (1)
  1. LEVAQUIN [Suspect]
     Indication: PNEUMONIA ASPIRATION
     Dosage: 500 MGM Q DAY PO
     Route: 048
     Dates: start: 20100402, end: 20100405

REACTIONS (1)
  - HAEMOLYTIC ANAEMIA [None]
